FAERS Safety Report 17446940 (Version 1)
Quarter: 2020Q1

REPORT INFORMATION
  Report Type: Report from Study
  Country: GB (occurrence: GB)
  Receive Date: 20200221
  Receipt Date: 20200221
  Transmission Date: 20200409
  Serious: Yes (Hospitalization)
  Sender: FDA-Public Use
  Company Number: GB-AMGEN-GBRCT2020026301

PATIENT

DRUGS (4)
  1. SODIUM FLUORIDE (18F) [Concomitant]
     Dosage: 125 MEGABECQUEREL
     Route: 042
  2. ALENDRONATE [Suspect]
     Active Substance: ALENDRONATE SODIUM
     Indication: OSTEOPOROSIS
     Dosage: 70 MILLIGRAM, QWK
     Route: 048
     Dates: start: 20170505, end: 20180405
  3. SODIUM FLUORIDE (18F) [Concomitant]
     Dosage: 125 MEGABECQUEREL
     Route: 042
     Dates: start: 20180405, end: 20180405
  4. DENOSUMAB [Suspect]
     Active Substance: DENOSUMAB
     Indication: OSTEOPOROSIS
     Dosage: UNK
     Route: 065

REACTIONS (1)
  - Aortic valve replacement [Recovered/Resolved]

NARRATIVE: CASE EVENT DATE: 20180529
